FAERS Safety Report 17652046 (Version 2)
Quarter: 2020Q4

REPORT INFORMATION
  Report Type: Spontaneous
  Country: US (occurrence: US)
  Receive Date: 20200409
  Receipt Date: 20201222
  Transmission Date: 20210113
  Serious: Yes (Other)
  Sender: FDA-Public Use
  Company Number: US-ASTRAZENECA-2020SE41858

PATIENT
  Sex: Female

DRUGS (1)
  1. SYMBICORT [Suspect]
     Active Substance: BUDESONIDE\FORMOTEROL FUMARATE DIHYDRATE
     Indication: MULTIPLE ALLERGIES
     Dosage: UNKNOWN DOSE, TWO TIMES A DAY
     Route: 055

REACTIONS (2)
  - Corneal dystrophy [Unknown]
  - Off label use [Unknown]
